FAERS Safety Report 4789802-X (Version None)
Quarter: 2005Q4

REPORT INFORMATION
  Report Type: 
  Country: None (occurrence: None)
  Receive Date: 20051006
  Receipt Date: 20050916
  Transmission Date: 20060501
  Serious: Yes (Hospitalization, Disabling)
  Sender: FDA-Public Use
  Company Number: BE-GLAXOSMITHKLINE-B0394849A

PATIENT
  Age: 73 Year
  Sex: Male
  Weight: 88 kg

DRUGS (7)
  1. SERETIDE [Suspect]
     Indication: CHRONIC OBSTRUCTIVE PULMONARY DISEASE
     Route: 055
     Dates: start: 20030101, end: 20050623
  2. MEDROL [Concomitant]
     Indication: CHRONIC OBSTRUCTIVE PULMONARY DISEASE
     Route: 048
  3. ATACAND [Concomitant]
     Route: 065
  4. FLUDEX [Concomitant]
     Route: 065
  5. TRITACE [Concomitant]
     Indication: HYPERTENSION
     Route: 065
  6. SPIRIVA [Concomitant]
     Dates: start: 20000101, end: 20050601
  7. SINGULAIR [Concomitant]
     Dates: start: 20000101, end: 20050601

REACTIONS (9)
  - AMYLOIDOSIS [None]
  - BLOOD ALBUMIN INCREASED [None]
  - BLOOD CREATININE INCREASED [None]
  - BLOOD UREA INCREASED [None]
  - DYSPNOEA EXACERBATED [None]
  - GAIT DISTURBANCE [None]
  - HYPERTENSION [None]
  - NEPHROANGIOSCLEROSIS [None]
  - RENAL FAILURE [None]
